FAERS Safety Report 13725887 (Version 1)
Quarter: 2017Q3

REPORT INFORMATION
  Report Type: Spontaneous
  Country: US (occurrence: US)
  Receive Date: 20170706
  Receipt Date: 20170706
  Transmission Date: 20171127
  Serious: Yes (Hospitalization)
  Sender: FDA-Public Use
  Company Number: None

PATIENT
  Age: 48 Year
  Sex: Male
  Weight: 92.4 kg

DRUGS (1)
  1. JARDIANCE [Suspect]
     Active Substance: EMPAGLIFLOZIN
     Indication: TYPE 2 DIABETES MELLITUS

REACTIONS (10)
  - Chest pain [None]
  - Dyspepsia [None]
  - Abdominal distension [None]
  - Chest discomfort [None]
  - Sensation of foreign body [None]
  - Dry mouth [None]
  - Headache [None]
  - Diabetic ketoacidosis [None]
  - Malaise [None]
  - Stress [None]

NARRATIVE: CASE EVENT DATE: 20170606
